FAERS Safety Report 8577243-9 (Version None)
Quarter: 2012Q3

REPORT INFORMATION
  Report Type: 
  Country: None (occurrence: None)
  Receive Date: 20120807
  Receipt Date: 20120727
  Transmission Date: 20120928
  Serious: No
  Sender: FDA-Public Use
  Company Number: US-ASTRAZENECA-2009SE06103

PATIENT
  Age: 37 Year
  Sex: Female

DRUGS (14)
  1. SEROQUEL XR [Suspect]
     Route: 048
  2. SEROQUEL XR [Suspect]
     Route: 048
  3. SEROQUEL XR [Suspect]
     Indication: SLEEP DISORDER
     Route: 048
     Dates: start: 20090501
  4. SEROQUEL XR [Suspect]
     Dosage: 200 TO 250 MG AT BED TIME
     Route: 048
  5. SEROQUEL XR [Suspect]
     Route: 048
     Dates: start: 20090501
  6. SEROQUEL XR [Suspect]
     Route: 048
  7. SEROQUEL XR [Suspect]
     Route: 048
  8. SEROQUEL XR [Suspect]
     Route: 048
  9. SEROQUEL XR [Suspect]
     Route: 048
  10. SEROQUEL XR [Suspect]
     Route: 048
     Dates: start: 20090501
  11. SEROQUEL XR [Suspect]
     Dosage: 200 TO 250 MG AT BED TIME
     Route: 048
  12. SEROQUEL XR [Suspect]
     Indication: BIPOLAR DISORDER
     Route: 048
     Dates: start: 20090501
  13. SEROQUEL XR [Suspect]
     Route: 048
  14. SEROQUEL XR [Suspect]
     Route: 048

REACTIONS (10)
  - HALLUCINATION [None]
  - TINNITUS [None]
  - DELUSION [None]
  - LETHARGY [None]
  - ROAD TRAFFIC ACCIDENT [None]
  - GASTROINTESTINAL PAIN [None]
  - BRUXISM [None]
  - INSOMNIA [None]
  - NECK INJURY [None]
  - DRUG DOSE OMISSION [None]
